FAERS Safety Report 14694236 (Version 1)
Quarter: 2018Q1

REPORT INFORMATION
  Report Type: Spontaneous
  Country: US (occurrence: US)
  Receive Date: 20180327
  Receipt Date: 20180327
  Transmission Date: 20180509
  Serious: Yes (Other)
  Sender: FDA-Public Use
  Company Number: None

PATIENT
  Age: 9 Year
  Sex: Male
  Weight: 54 kg

DRUGS (1)
  1. ATOMOXETINE 40MG [Suspect]
     Active Substance: ATOMOXETINE
     Indication: ATTENTION DEFICIT/HYPERACTIVITY DISORDER
     Route: 048

REACTIONS (5)
  - Product substitution issue [None]
  - Educational problem [None]
  - Aggression [None]
  - Anger [None]
  - Disturbance in attention [None]

NARRATIVE: CASE EVENT DATE: 20171219
